FAERS Safety Report 19284810 (Version 1)
Quarter: 2021Q2

REPORT INFORMATION
  Report Type: Spontaneous
  Country: US (occurrence: US)
  Receive Date: 20210521
  Receipt Date: 20210521
  Transmission Date: 20210717
  Serious: Yes (Hospitalization)
  Sender: FDA-Public Use
  Company Number: None

PATIENT
  Age: 47 Year
  Sex: Female

DRUGS (2)
  1. MELATONIN 5MG TABLET [Concomitant]
     Dates: start: 20190307
  2. TREMFYA [Suspect]
     Active Substance: GUSELKUMAB
     Indication: PSORIASIS
     Dosage: ?          OTHER FREQUENCY:EVERY 2 MONTHS;?
     Route: 058
     Dates: start: 20190807

REACTIONS (2)
  - Intentional dose omission [None]
  - Surgery [None]

NARRATIVE: CASE EVENT DATE: 20210201
